FAERS Safety Report 9432761 (Version 1)
Quarter: 2013Q3

REPORT INFORMATION
  Report Type: Spontaneous
  Country: US (occurrence: US)
  Receive Date: 20130731
  Receipt Date: 20130731
  Transmission Date: 20140515
  Serious: Yes (Life-Threatening, Hospitalization)
  Sender: FDA-Public Use
  Company Number: US-ROCHE-1248021

PATIENT
  Age: 54 Year
  Sex: Female
  Weight: 156.03 kg

DRUGS (1)
  1. XOLAIR [Suspect]
     Indication: ASTHMA
     Route: 058
     Dates: start: 20120910, end: 20130522

REACTIONS (1)
  - Anaphylactic reaction [Recovered/Resolved]
